FAERS Safety Report 4638490-1 (Version None)
Quarter: 2005Q2

REPORT INFORMATION
  Report Type: 
  Country: None (occurrence: None)
  Receive Date: 20050418
  Receipt Date: 20050329
  Transmission Date: 20051028
  Serious: Yes (Hospitalization)
  Sender: FDA-Public Use
  Company Number: EWC050242700

PATIENT
  Age: 58 Year
  Sex: Female

DRUGS (8)
  1. HUMULIN 70/30 [Suspect]
     Indication: DIABETES MELLITUS
     Dosage: 76 IU/2 DAY
     Dates: start: 20030201, end: 20050204
  2. HUMULIN R [Suspect]
     Indication: DIABETES MELLITUS
     Dosage: 16 IU/1 IN THE MORNING
     Dates: start: 20050121, end: 20050204
  3. GLIMEPIRIDE [Concomitant]
  4. REZULT (ROSIGLITAZONE) [Concomitant]
  5. GLUCOBAY [Concomitant]
  6. RAMIPRIL [Concomitant]
  7. LORAM (LORAZEPAM) [Concomitant]
  8. METFORMIN HCL [Concomitant]

REACTIONS (4)
  - ABSCESS [None]
  - INJECTION SITE PAIN [None]
  - SKIN DISCOLOURATION [None]
  - SWELLING [None]
